FAERS Safety Report 9060808 (Version 1)
Quarter: 2013Q1

REPORT INFORMATION
  Report Type: Spontaneous
  Country: US (occurrence: US)
  Receive Date: 20130204
  Receipt Date: 20130204
  Transmission Date: 20140127
  Serious: No
  Sender: FDA-Public Use
  Company Number: US-009507513-1301USA013129

PATIENT
  Age: 35 Year
  Sex: Male

DRUGS (4)
  1. DEXAMETHASONE [Suspect]
     Indication: AUTOIMMUNE HAEMOLYTIC ANAEMIA
     Route: 048
  2. DEXAMETHASONE [Suspect]
     Indication: AUTOIMMUNE THROMBOCYTOPENIA
  3. GLOBULIN, IMMUNE [Suspect]
     Indication: AUTOIMMUNE HAEMOLYTIC ANAEMIA
     Route: 042
  4. GLOBULIN, IMMUNE [Suspect]
     Indication: AUTOIMMUNE THROMBOCYTOPENIA

REACTIONS (1)
  - Drug ineffective [Unknown]
